FAERS Safety Report 4914655-6 (Version None)
Quarter: 2006Q1

REPORT INFORMATION
  Report Type: 
  Country: None (occurrence: None)
  Receive Date: 20060216
  Receipt Date: 20051013
  Transmission Date: 20060701
  Serious: Yes (Hospitalization)
  Sender: FDA-Public Use
  Company Number: US-MERCK-0510USA07301

PATIENT
  Age: 46 Year
  Sex: Male

DRUGS (1)
  1. VIOXX [Suspect]
     Route: 048
     Dates: start: 19990101, end: 20041001

REACTIONS (11)
  - ANGINA UNSTABLE [None]
  - ARACHNOID CYST [None]
  - CEREBELLAR SYNDROME [None]
  - CEREBRAL INFARCTION [None]
  - FACIAL NERVE DISORDER [None]
  - GAIT DISTURBANCE [None]
  - HEMIPARESIS [None]
  - HYPERTENSION [None]
  - MYOCARDIAL INFARCTION [None]
  - SINUS DISORDER [None]
  - THYROID MASS [None]
